FAERS Safety Report 10159840 (Version 1)
Quarter: 2014Q2

REPORT INFORMATION
  Report Type: Spontaneous
  Country: US (occurrence: US)
  Receive Date: 20140508
  Receipt Date: 20140508
  Transmission Date: 20141212
  Serious: Yes (Hospitalization, Other)
  Sender: FDA-Public Use
  Company Number: US-SA-2014SA059149

PATIENT
  Age: 57 Year
  Sex: Female

DRUGS (25)
  1. AMBIEN [Suspect]
     Indication: SLEEP DISORDER
     Route: 065
  2. ADVAIR [Suspect]
     Indication: CHRONIC OBSTRUCTIVE PULMONARY DISEASE
     Dosage: DOSE:1 PUFF(S)
     Route: 065
     Dates: start: 2004
  3. ADVAIR [Suspect]
     Indication: EMPHYSEMA
     Dosage: DOSE:1 PUFF(S)
     Route: 065
     Dates: start: 2004
  4. ADVAIR [Suspect]
     Indication: ASTHMA
     Dosage: DOSE:1 PUFF(S)
     Route: 065
     Dates: start: 2004
  5. VENTOLINE [Suspect]
     Indication: DYSPNOEA
     Route: 065
     Dates: start: 2007
  6. FLUTICASONE [Suspect]
     Indication: RHINITIS ALLERGIC
     Dosage: 1 SPRAY INTRANASAL
     Dates: start: 20120727
  7. FLONASE [Suspect]
     Indication: RHINITIS ALLERGIC
     Dosage: 1 SPRAY AS REQUIRED VIA INTRANASAL
     Dates: end: 2013
  8. XANAX [Suspect]
     Indication: PRODUCT USED FOR UNKNOWN INDICATION
     Dosage: FIVE TIMES PER DAY.
     Route: 065
  9. CITALOPRAM [Concomitant]
  10. VERAPAMIL [Concomitant]
  11. OXYGEN [Concomitant]
  12. ALL OTHER THERAPEUTIC PRODUCTS [Concomitant]
  13. CETIRIZINE HYDROCHLORIDE [Concomitant]
  14. LOVASTATIN [Concomitant]
  15. OXYBUTYNIN [Concomitant]
  16. BUPROPION HYDROCHLORIDE [Concomitant]
  17. ESOMEPRAZOLE [Concomitant]
  18. ALPRAZOLAM [Concomitant]
  19. TIOTROPIUM [Concomitant]
  20. SALBUTAMOL SULFATE [Concomitant]
  21. MUPIROCIN [Concomitant]
  22. NYSTATIN [Concomitant]
  23. MULTIVITAMINS [Concomitant]
  24. STOOL SOFTENER [Concomitant]
  25. TOLTERODINE TARTRATE [Concomitant]

REACTIONS (19)
  - Oxygen saturation decreased [Recovered/Resolved]
  - Oxygen saturation decreased [Unknown]
  - Hip fracture [Recovered/Resolved]
  - Loss of consciousness [Recovered/Resolved]
  - Hospitalisation [Unknown]
  - Scab [Unknown]
  - Respiratory disorder [Unknown]
  - Pleural effusion [Recovered/Resolved]
  - Lung disorder [Recovered/Resolved]
  - Chest discomfort [Recovered/Resolved]
  - Accident [Unknown]
  - Burning sensation [Unknown]
  - Thermal burn [Unknown]
  - Fall [Recovered/Resolved]
  - Malaise [Recovered/Resolved]
  - Memory impairment [Unknown]
  - Incorrect dosage administered [Unknown]
  - Drug intolerance [Unknown]
  - Drug administration error [Unknown]
